FAERS Safety Report 16919632 (Version 1)
Quarter: 2019Q4

REPORT INFORMATION
  Report Type: Report from Study
  Country: None (occurrence: HU)
  Receive Date: 20191015
  Receipt Date: 20191015
  Transmission Date: 20200122
  Serious: Yes (Hospitalization)
  Sender: FDA-Public Use
  Company Number: HU-ABBVIE-19K-076-2961274-00

PATIENT
  Age: 70 Year
  Sex: Male

DRUGS (11)
  1. ASPIRIN. [Concomitant]
     Active Substance: ASPIRIN
     Indication: PROPHYLAXIS
     Route: 048
     Dates: start: 2008
  2. TEVA SABALLO [Concomitant]
     Indication: BENIGN PROSTATIC HYPERPLASIA
     Route: 048
     Dates: start: 2015
  3. VALSOTENS [Concomitant]
     Active Substance: VALSARTAN
     Indication: HYPERTENSION
     Route: 048
     Dates: start: 2008
  4. QUETIAPINE TEVA [Concomitant]
     Active Substance: QUETIAPINE
     Indication: HALLUCINATION
     Dosage: IN THE EVENING
     Route: 048
     Dates: start: 201609
  5. ATORVA TEVA [Concomitant]
     Indication: HYPERCHOLESTEROLAEMIA
     Dosage: IN THE EVENING
     Route: 048
     Dates: start: 2008
  6. MIDERIZONE [Concomitant]
     Indication: PARKINSON^S DISEASE
     Route: 048
     Dates: start: 2015
  7. KLION [Concomitant]
     Indication: PROPHYLAXIS
     Route: 048
     Dates: start: 20180409, end: 20180412
  8. APO-FAMOTIDIN [Concomitant]
     Indication: PROPHYLAXIS
     Dosage: IN THE EVENING
     Route: 048
     Dates: start: 2016
  9. DUODOPA [Suspect]
     Active Substance: CARBIDOPA\LEVODOPA
     Indication: PARKINSON^S DISEASE
     Dosage: MORNING DOSE 7.2 ML; CONTINUOUS DOSE 3.5 ML/H; EXTRA DOSE 1.0 ML
     Route: 050
     Dates: start: 20170313
  10. MIDERIZONE [Concomitant]
     Indication: MUSCLE SPASMS
  11. ESOMEPRAZOL SANDOZ [Concomitant]
     Indication: PROPHYLAXIS
     Route: 048
     Dates: start: 20180409

REACTIONS (4)
  - Clavicle fracture [Unknown]
  - Fall [Recovered/Resolved]
  - Hip fracture [Unknown]
  - Rib fracture [Unknown]

NARRATIVE: CASE EVENT DATE: 20190928
